FAERS Safety Report 11713123 (Version 2)
Quarter: 2015Q4

REPORT INFORMATION
  Report Type: Spontaneous
  Country: US (occurrence: US)
  Receive Date: 20151109
  Receipt Date: 20151127
  Transmission Date: 20160304
  Serious: No
  Sender: FDA-Public Use
  Company Number: US-LEO PHARMA-237947

PATIENT
  Sex: Female

DRUGS (1)
  1. PICATO [Suspect]
     Active Substance: INGENOL MEBUTATE
     Indication: ACTINIC KERATOSIS
     Route: 061
     Dates: start: 20151022, end: 20151024

REACTIONS (10)
  - Application site swelling [Recovered/Resolved]
  - Insomnia [Recovered/Resolved]
  - Application site warmth [Recovered/Resolved]
  - Application site vesicles [Recovered/Resolved]
  - Application site discolouration [Recovered/Resolved]
  - Application site pain [Recovered/Resolved]
  - Application site erythema [Recovered/Resolved]
  - Dyspnoea [Recovered/Resolved]
  - Application site discharge [Recovered/Resolved]
  - Drug administration error [Unknown]
